FAERS Safety Report 8621889-6 (Version None)
Quarter: 2012Q3

REPORT INFORMATION
  Report Type: 
  Country: None (occurrence: None)
  Receive Date: 20120822
  Receipt Date: 20120822
  Transmission Date: 20120928
  Serious: Yes (Hospitalization)
  Sender: FDA-Public Use
  Company Number: None

PATIENT
  Sex: Female
  Weight: 23.6 kg

DRUGS (6)
  1. CYTARABINE [Suspect]
     Dosage: 70 MG
  2. METHOTREXATE [Suspect]
     Dosage: 12 MG
  3. DEXAMETHASONE [Suspect]
     Dosage: 115 MG
  4. PEG-L- ASPARAGINASE (PEGASPARGASE, ONCOSPAR) [Suspect]
  5. VINCRISTINE SULFATE [Suspect]
     Dosage: 2.8 MG
  6. DAUNORUBICIN HCL [Suspect]
     Dosage: 46 MG

REACTIONS (7)
  - INTERNATIONAL NORMALISED RATIO INCREASED [None]
  - ACTIVATED PARTIAL THROMBOPLASTIN TIME PROLONGED [None]
  - BLOOD FIBRINOGEN DECREASED [None]
  - COAGULOPATHY [None]
  - RED BLOOD CELL SCHISTOCYTES PRESENT [None]
  - FIBRIN D DIMER INCREASED [None]
  - PROTHROMBIN TIME PROLONGED [None]
